FAERS Safety Report 16557541 (Version 2)
Quarter: 2019Q3

REPORT INFORMATION
  Report Type: Report from Study
  Country: RO (occurrence: RO)
  Receive Date: 20190711
  Receipt Date: 20190909
  Transmission Date: 20191004
  Serious: Yes (Other)
  Sender: FDA-Public Use
  Company Number: RO-CELLTRION INC.-2019RO022516

PATIENT

DRUGS (7)
  1. REMSIMA [Suspect]
     Active Substance: INFLIXIMAB
     Dosage: 200 MG, EVERY 2 MONTHS
     Route: 042
     Dates: start: 20190103
  2. REMSIMA [Suspect]
     Active Substance: INFLIXIMAB
     Dosage: 200 MG, EVERY 2 MONTHS
     Route: 042
     Dates: start: 20190404
  3. ACIFOL [FOLIC ACID] [Concomitant]
     Indication: PROPHYLAXIS
     Dosage: 20 MG/WEEK
     Dates: start: 20180722
  4. IZONIAZIDA [Concomitant]
     Indication: LATENT TUBERCULOSIS
     Dosage: 300 MG, DAILY
     Dates: start: 20181109
  5. REMSIMA [Suspect]
     Active Substance: INFLIXIMAB
     Dosage: 200 MG, EVERY 2 MONTHS
     Route: 042
     Dates: start: 20190204
  6. REMSIMA [Suspect]
     Active Substance: INFLIXIMAB
     Indication: RHEUMATOID ARTHRITIS
     Dosage: 200 MG, EVERY 2 MONTHS
     Route: 042
     Dates: start: 20181219
  7. METHOTREXATE. [Concomitant]
     Active Substance: METHOTREXATE
     Indication: RHEUMATOID ARTHRITIS
     Dosage: 10 MG/WEEK
     Dates: start: 20150324

REACTIONS (2)
  - Contraindicated product administered [Unknown]
  - Pelvic haemorrhage [Recovering/Resolving]

NARRATIVE: CASE EVENT DATE: 20190604
